FAERS Safety Report 9322948 (Version 1)
Quarter: 2013Q2

REPORT INFORMATION
  Report Type: Report from Study
  Country: US (occurrence: US)
  Receive Date: 20130603
  Receipt Date: 20130603
  Transmission Date: 20140414
  Serious: Yes (Death)
  Sender: FDA-Public Use
  Company Number: US-ROCHE-1230864

PATIENT
  Age: 57 Year
  Sex: Male

DRUGS (1)
  1. CATHFLO ACTIVASE [Suspect]
     Indication: VASCULAR COMPLICATION ASSOCIATED WITH DEVICE
     Route: 065
     Dates: start: 20130221

REACTIONS (1)
  - Death [Fatal]
